FAERS Safety Report 11321586 (Version 5)
Quarter: 2017Q4

REPORT INFORMATION
  Report Type: Spontaneous
  Country: US (occurrence: US)
  Receive Date: 20150729
  Receipt Date: 20171214
  Transmission Date: 20180320
  Serious: No
  Sender: FDA-Public Use
  Company Number: US-PFIZER INC-2015250621

PATIENT
  Age: 62 Year
  Sex: Female
  Weight: 88.89 kg

DRUGS (3)
  1. SOMAVERT [Suspect]
     Active Substance: PEGVISOMANT
     Indication: ACROMEGALY
     Dosage: UNK UNK, DAILY (30 MG THREE DAYS PER WEEK, THEN 60 MG 4 DAYS PER WEEK)
     Route: 058
     Dates: start: 201507
  2. SOMAVERT [Suspect]
     Active Substance: PEGVISOMANT
     Indication: HYPOTHALAMO-PITUITARY DISORDER
     Dosage: 30 MG, UNK
     Route: 058
     Dates: start: 201003
  3. SOMAVERT [Suspect]
     Active Substance: PEGVISOMANT
     Dosage: 60 MG, DAILY
     Dates: start: 20100409

REACTIONS (6)
  - Injection site reaction [Recovered/Resolved]
  - Weight decreased [Unknown]
  - Product use issue [Unknown]
  - Skin infection [Unknown]
  - Injection site pain [Unknown]
  - Product quality issue [Unknown]
